FAERS Safety Report 12269630 (Version 1)
Quarter: 2016Q2

REPORT INFORMATION
  Report Type: Spontaneous
  Country: AU (occurrence: AU)
  Receive Date: 20160414
  Receipt Date: 20160414
  Transmission Date: 20160815
  Serious: Yes (Other)
  Sender: FDA-Public Use
  Company Number: AU-SUNOVION-2016DSP000061

PATIENT
  Sex: Male

DRUGS (1)
  1. LATUDA [Suspect]
     Active Substance: LURASIDONE HYDROCHLORIDE
     Dosage: 40 MG, QD
     Route: 048

REACTIONS (5)
  - Decreased activity [Unknown]
  - Drug administration error [Unknown]
  - Somnolence [Unknown]
  - Hallucination, auditory [Unknown]
  - Hypoaesthesia [Unknown]
